FAERS Safety Report 18162400 (Version 1)
Quarter: 2020Q3

REPORT INFORMATION
  Report Type: Spontaneous
  Country: US (occurrence: US)
  Receive Date: 20200818
  Receipt Date: 20200818
  Transmission Date: 20201103
  Serious: Yes (Other)
  Sender: FDA-Public Use
  Company Number: US-SUN PHARMACEUTICAL INDUSTRIES LTD-2020R1-256954

PATIENT
  Age: 81 Year
  Sex: Male

DRUGS (1)
  1. TECHNETIUM TC99M MEDRONATE [Suspect]
     Active Substance: TECHNETIUM TC-99M MEDRONATE
     Indication: PRODUCT USED FOR UNKNOWN INDICATION
     Dosage: UNK
     Route: 065

REACTIONS (1)
  - Hypersensitivity vasculitis [Unknown]
